FAERS Safety Report 24302872 (Version 1)
Quarter: 2024Q3

REPORT INFORMATION
  Report Type: Spontaneous
  Country: FR (occurrence: FR)
  Receive Date: 20240910
  Receipt Date: 20240910
  Transmission Date: 20241016
  Serious: Yes (Other)
  Sender: RANBAXY
  Company Number: FR-SUN PHARMACEUTICAL INDUSTRIES LTD-2024RR-466829

PATIENT
  Age: 76 Year
  Sex: Male

DRUGS (2)
  1. BICALUTAMIDE [Suspect]
     Active Substance: BICALUTAMIDE
     Indication: Adenocarcinoma
     Dosage: 100 MILLIGRAM, DAILY
  2. TRIPTORELIN [Concomitant]
     Active Substance: TRIPTORELIN
     Indication: Adenocarcinoma
     Dosage: 11.25 MILLIGRAM EVERY 3 MONTHS FOR 6 MONTHS
     Route: 065

REACTIONS (1)
  - Major depression [Unknown]
